FAERS Safety Report 14061494 (Version 2)
Quarter: 2017Q4

REPORT INFORMATION
  Report Type: Spontaneous
  Country: US (occurrence: US)
  Receive Date: 20171009
  Receipt Date: 20171124
  Transmission Date: 20180321
  Serious: Yes (Hospitalization)
  Sender: FDA-Public Use
  Company Number: US-ROCHE-1882214

PATIENT
  Sex: Female

DRUGS (16)
  1. BREO ELLIPTA [Concomitant]
     Active Substance: FLUTICASONE FUROATE\VILANTEROL TRIFENATATE
     Dosage: INHALE 200 MCG INTO THE LUNGS DAILY, 20-25 MICRO GRAM
     Route: 065
  2. PREDNISONE. [Suspect]
     Active Substance: PREDNISONE
     Indication: PRODUCT USED FOR UNKNOWN INDICATION
     Dosage: ADMINISTERED IN ER; ONGOING: NO
     Route: 065
  3. NASONEX [Concomitant]
     Active Substance: MOMETASONE FUROATE
     Dosage: INHALE 2 SPRAYS INTO THE NOSE DAILY
     Route: 065
  4. TESSALON [Concomitant]
     Active Substance: BENZONATATE
     Indication: COUGH
     Route: 048
  5. XOPENEX HFA [Concomitant]
     Active Substance: LEVALBUTEROL TARTRATE
     Indication: WHEEZING
     Dosage: INHALE 2 PUFFS INTO THE LUNGS EVERY 4 HOURS PRN
     Route: 065
  6. PRILOSEC [Concomitant]
     Active Substance: OMEPRAZOLE MAGNESIUM
     Dosage: 1 CAPSULE BY MOUTH 2 TIMES DAILY
     Route: 048
  7. MOTRIN [Concomitant]
     Active Substance: IBUPROFEN
     Dosage: 1.25MG/3ML WITH FOOD
     Route: 048
  8. XOPENEX [Concomitant]
     Active Substance: LEVALBUTEROL HYDROCHLORIDE
     Indication: WHEEZING
     Dosage: TAKE 3 MLS BY NEBULIZATION EVERY 4 HRS PRN
     Route: 065
  9. XOLAIR [Suspect]
     Active Substance: OMALIZUMAB
     Dosage: DOSE IN OCTOBER 2016 AND ONE IN NOVEMBER 2016; NO?SHOTS IN ARM
     Route: 058
     Dates: start: 201611
  10. XOLAIR [Suspect]
     Active Substance: OMALIZUMAB
     Dosage: DOSE IN OCTOBER 2016 AND ONE IN NOVEMBER 2016; NO?SHOTS IN ARM
     Route: 058
     Dates: start: 20161228
  11. PREMARIN [Concomitant]
     Active Substance: ESTROGENS, CONJUGATED
     Route: 048
  12. PHENTERMINE. [Concomitant]
     Active Substance: PHENTERMINE
     Route: 065
  13. XYZAL [Concomitant]
     Active Substance: LEVOCETIRIZINE DIHYDROCHLORIDE
     Route: 048
  14. SINGULAIR [Concomitant]
     Active Substance: MONTELUKAST SODIUM
     Dosage: TAKE 1 TABLET BY MOUTH NIGHTLY
     Route: 048
  15. XOLAIR [Suspect]
     Active Substance: OMALIZUMAB
     Indication: ASTHMA
     Dosage: YES
     Route: 058
     Dates: start: 201609
  16. XOLAIR [Suspect]
     Active Substance: OMALIZUMAB
     Dosage: YES
     Route: 058
     Dates: start: 201610, end: 20161228

REACTIONS (8)
  - Anaphylactic reaction [Unknown]
  - Blood pressure increased [Unknown]
  - Off label use [Unknown]
  - Throat tightness [Unknown]
  - Intentional product use issue [Unknown]
  - Anxiety [Unknown]
  - Gastric disorder [Unknown]
  - Skin discolouration [Unknown]
